FAERS Safety Report 6640871-1 (Version None)
Quarter: 2010Q1

REPORT INFORMATION
  Report Type: 
  Country: None (occurrence: None)
  Receive Date: 20100318
  Receipt Date: 20100305
  Transmission Date: 20100710
  Serious: Yes (Life-Threatening, Hospitalization)
  Sender: FDA-Public Use
  Company Number: JP-AMGEN-US326418

PATIENT
  Sex: Male
  Weight: 66 kg

DRUGS (23)
  1. ENBREL [Suspect]
     Indication: RHEUMATOID ARTHRITIS
     Route: 058
     Dates: start: 20080226, end: 20090325
  2. AZULFIDINE [Concomitant]
     Indication: RHEUMATOID ARTHRITIS
     Route: 048
     Dates: start: 20080226, end: 20080325
  3. BAKUMONDOUTO [Concomitant]
     Route: 048
     Dates: start: 20080226, end: 20080325
  4. TAKEPRON [Concomitant]
     Route: 048
     Dates: start: 20080226, end: 20080325
  5. MARZULENE [Concomitant]
     Route: 048
     Dates: start: 20080226, end: 20080325
  6. GLYSENNID [Concomitant]
     Route: 048
     Dates: start: 20080226, end: 20080325
  7. LACTOBAC [Concomitant]
     Route: 048
     Dates: start: 20080226, end: 20080325
  8. DOXAZOSIN MESYLATE [Concomitant]
     Route: 048
     Dates: start: 20080226, end: 20080325
  9. MAGNESIUM OXIDE [Concomitant]
     Route: 048
     Dates: start: 20080226, end: 20080325
  10. NORVASC [Concomitant]
     Route: 048
     Dates: start: 20080226, end: 20080325
  11. FERRUM [Concomitant]
     Route: 048
     Dates: start: 20080226, end: 20080325
  12. NEOISCOTIN [Concomitant]
     Indication: PROPHYLAXIS
     Dosage: 400 MG/DAY
     Route: 048
     Dates: start: 20080226, end: 20080325
  13. PYRIDOXAL PHOSPHATE [Concomitant]
     Indication: PROPHYLAXIS
     Route: 048
  14. DIDRONEL [Concomitant]
     Dosage: UNKNOWN
     Route: 048
  15. URSO 250 [Concomitant]
     Dosage: UNKNOWN
     Route: 048
  16. LASIX [Concomitant]
     Dosage: UNKNOWN
     Route: 048
  17. MUCOSTA [Concomitant]
     Dosage: UNKNOWN
     Route: 048
  18. SENNOSIDE A [Concomitant]
     Dosage: UNKNOWN
     Route: 048
  19. CORINAEL [Concomitant]
     Dosage: UNKNOWN
     Route: 048
  20. SULFAMETHOXAZOLE AND TRIMETHOPRIM [Concomitant]
     Dosage: UNKNOWN
     Route: 048
  21. ZOLPIDEM [Concomitant]
     Dosage: UNKNOWN
     Route: 048
  22. MOHRUS [Concomitant]
     Indication: RHEUMATOID ARTHRITIS
     Dosage: UNKNOWN
  23. PREDNISOLONE [Concomitant]
     Indication: RHEUMATOID ARTHRITIS
     Route: 048
     Dates: start: 20080226, end: 20080325

REACTIONS (5)
  - ASCITES [None]
  - ENTERITIS [None]
  - HERPES OESOPHAGITIS [None]
  - OESOPHAGEAL ULCER PERFORATION [None]
  - PULMONARY ALVEOLAR HAEMORRHAGE [None]
